FAERS Safety Report 6626947-3 (Version None)
Quarter: 2010Q1

REPORT INFORMATION
  Report Type: 
  Country: None (occurrence: None)
  Receive Date: 20100311
  Receipt Date: 20100225
  Transmission Date: 20100710
  Serious: Yes (Other)
  Sender: FDA-Public Use
  Company Number: US-CELGENEUS-163-21880-10030049

PATIENT
  Sex: Female

DRUGS (2)
  1. REVLIMID [Suspect]
     Indication: MULTIPLE MYELOMA
     Route: 048
     Dates: start: 20090202
  2. REVLIMID [Suspect]
     Dosage: 5MG
     Route: 048
     Dates: start: 20070701, end: 20081201

REACTIONS (1)
  - CHOLELITHIASIS [None]
